FAERS Safety Report 23769706 (Version 3)
Quarter: 2025Q3

REPORT INFORMATION
  Report Type: Spontaneous
  Country: CA (occurrence: CA)
  Receive Date: 20240422
  Receipt Date: 20250923
  Transmission Date: 20251020
  Serious: Yes (Other)
  Sender: SANDOZ
  Company Number: CA-002147023-NVSC2024CA080682

PATIENT
  Age: 60 Year
  Sex: Male

DRUGS (25)
  1. ASPIRIN [Suspect]
     Active Substance: ASPIRIN
     Indication: Product used for unknown indication
     Route: 065
  2. ASMANEX [Suspect]
     Active Substance: MOMETASONE FUROATE
     Indication: Product used for unknown indication
     Route: 065
  3. ASPIRIN [Suspect]
     Active Substance: ASPIRIN
     Indication: Product used for unknown indication
     Route: 065
  4. BUDESONIDE [Suspect]
     Active Substance: BUDESONIDE
     Indication: Product used for unknown indication
     Dosage: 2 DOSAGE FORM, BID
     Route: 065
  5. BUDESONIDE\FORMOTEROL FUMARATE [Suspect]
     Active Substance: BUDESONIDE\FORMOTEROL FUMARATE
     Indication: Product used for unknown indication
     Dosage: 2 DOSAGE FORM, BID (POWDER)
     Route: 065
  6. FLUTICASONE [Suspect]
     Active Substance: FLUTICASONE
     Indication: Asthma
     Route: 065
  7. FORMOTEROL FUMARATE\MOMETASONE FUROATE [Suspect]
     Active Substance: FORMOTEROL FUMARATE\MOMETASONE FUROATE
     Indication: Productive cough
     Route: 065
  8. GLYCOPYRROLATE [Suspect]
     Active Substance: GLYCOPYRROLATE
     Indication: Product used for unknown indication
     Dosage: 1 DOSAGE FORM, QD
     Route: 065
  9. IMURAN [Suspect]
     Active Substance: AZATHIOPRINE
     Indication: Product used for unknown indication
     Route: 065
  10. IMURAN [Suspect]
     Active Substance: AZATHIOPRINE
     Route: 065
  11. IMURAN [Suspect]
     Active Substance: AZATHIOPRINE
     Indication: Product used for unknown indication
     Route: 065
  12. MOMETASONE FUROATE [Suspect]
     Active Substance: MOMETASONE FUROATE
     Indication: Product used for unknown indication
     Route: 065
  13. NUCALA [Suspect]
     Active Substance: MEPOLIZUMAB
     Indication: Asthma
     Route: 040
  14. PREDNISONE [Suspect]
     Active Substance: PREDNISONE
     Route: 065
  15. PREDNISONE [Suspect]
     Active Substance: PREDNISONE
     Indication: Product used for unknown indication
     Dosage: 5 MG, QD
     Route: 048
  16. ROSUVASTATIN [Suspect]
     Active Substance: ROSUVASTATIN
     Route: 048
  17. ROSUVASTATIN [Suspect]
     Active Substance: ROSUVASTATIN
     Indication: Product used for unknown indication
     Route: 065
  18. ALBUTEROL [Suspect]
     Active Substance: ALBUTEROL
     Indication: Vasculitis
     Route: 065
  19. ALBUTEROL [Suspect]
     Active Substance: ALBUTEROL
     Indication: Eosinophilia
     Route: 065
  20. SPIRIVA [Suspect]
     Active Substance: TIOTROPIUM BROMIDE MONOHYDRATE
     Indication: Product used for unknown indication
     Dosage: 2 DOSAGE FORM, QD
     Route: 065
  21. VENTOLIN HFA [Suspect]
     Active Substance: ALBUTEROL SULFATE
     Indication: Vasculitis
     Route: 065
  22. VENTOLIN HFA [Suspect]
     Active Substance: ALBUTEROL SULFATE
     Indication: Eosinophilia
  23. ZENHALE [Suspect]
     Active Substance: FORMOTEROL FUMARATE\MOMETASONE FUROATE
     Route: 065
  24. ZENHALE [Suspect]
     Active Substance: FORMOTEROL FUMARATE\MOMETASONE FUROATE
     Dosage: 2 DOSAGE FORM, BID
     Route: 065
  25. ZENHALE [Suspect]
     Active Substance: FORMOTEROL FUMARATE\MOMETASONE FUROATE
     Indication: Productive cough
     Route: 065

REACTIONS (18)
  - Asthma [Recovered/Resolved]
  - Disease recurrence [Recovered/Resolved]
  - Eosinophil count increased [Recovered/Resolved]
  - Eosinophilic granulomatosis with polyangiitis [Recovered/Resolved]
  - Full blood count abnormal [Recovered/Resolved]
  - Gastrooesophageal reflux disease [Recovered/Resolved]
  - Haemoptysis [Recovered/Resolved]
  - Hypoaesthesia [Recovered/Resolved]
  - Malaise [Recovered/Resolved]
  - Paraesthesia [Recovered/Resolved]
  - Productive cough [Recovered/Resolved]
  - Upper respiratory tract infection [Recovered/Resolved]
  - Vasculitis [Recovered/Resolved]
  - Drug dependence [Recovered/Resolved]
  - Neuropathy peripheral [Recovered/Resolved]
  - Cough [Recovered/Resolved]
  - Dyspnoea [Recovered/Resolved]
  - Therapeutic product effect incomplete [Recovered/Resolved]
